FAERS Safety Report 4539686-X (Version None)
Quarter: 2004Q4

REPORT INFORMATION
  Report Type: 
  Country: None (occurrence: None)
  Receive Date: 20041228
  Receipt Date: 20030605
  Transmission Date: 20050328
  Serious: Yes (Disabling, Other)
  Sender: FDA-Public Use
  Company Number: US-MERCK-0306USA00817

PATIENT
  Age: 49 Year
  Sex: Female
  Weight: 78 kg

DRUGS (6)
  1. VIOXX [Suspect]
     Indication: REPETITIVE STRAIN INJURY
     Route: 048
     Dates: start: 20010329
  2. VIOXX [Suspect]
     Route: 048
     Dates: start: 20000703
  3. VIOXX [Suspect]
     Route: 048
     Dates: start: 20020624
  4. VIOXX [Suspect]
     Indication: BURSITIS
     Route: 048
     Dates: start: 20010329
  5. VIOXX [Suspect]
     Route: 048
     Dates: start: 20000703
  6. VIOXX [Suspect]
     Route: 048
     Dates: start: 20020624

REACTIONS (63)
  - ABDOMINAL PAIN [None]
  - ABDOMINAL RIGIDITY [None]
  - ACUTE SINUSITIS [None]
  - ADJUSTMENT DISORDER WITH ANXIETY [None]
  - ADVERSE EVENT [None]
  - ANAEMIA VITAMIN B12 DEFICIENCY [None]
  - ANXIETY [None]
  - ARTHRALGIA [None]
  - BACK PAIN [None]
  - BALANCE DISORDER [None]
  - BLADDER PROLAPSE [None]
  - BRONCHITIS [None]
  - CHEST PAIN [None]
  - CONJUNCTIVITIS [None]
  - CONSTIPATION [None]
  - DRUG INEFFECTIVE [None]
  - DYSPHAGIA [None]
  - EXOSTOSIS [None]
  - FATIGUE [None]
  - FLAT AFFECT [None]
  - FLATULENCE [None]
  - FUNGAL INFECTION [None]
  - GALLBLADDER DISORDER [None]
  - GASTRITIS [None]
  - GASTROOESOPHAGEAL REFLUX DISEASE [None]
  - HOT FLUSH [None]
  - HYPOAESTHESIA [None]
  - INCREASED UPPER AIRWAY SECRETION [None]
  - INSOMNIA [None]
  - KIDNEY INFECTION [None]
  - LIVER FUNCTION TEST ABNORMAL [None]
  - MIGRAINE [None]
  - MUSCLE STRAIN [None]
  - MUSCLE TWITCHING [None]
  - MUSCULAR WEAKNESS [None]
  - NASAL CONGESTION [None]
  - NAUSEA [None]
  - NECK PAIN [None]
  - NEUROPATHY [None]
  - PAIN IN EXTREMITY [None]
  - PERNICIOUS ANAEMIA [None]
  - PHARYNGOLARYNGEAL PAIN [None]
  - PLEURISY [None]
  - POLYTRAUMATISM [None]
  - PYREXIA [None]
  - RHINITIS ALLERGIC [None]
  - ROAD TRAFFIC ACCIDENT [None]
  - ROTATOR CUFF SYNDROME [None]
  - SINUS CONGESTION [None]
  - SPEECH DISORDER [None]
  - STRESS SYMPTOMS [None]
  - TENDONITIS [None]
  - TENOSYNOVITIS [None]
  - THERAPY NON-RESPONDER [None]
  - TONSILLAR DISORDER [None]
  - TRIGGER FINGER [None]
  - UMBILICAL HERNIA [None]
  - UPPER RESPIRATORY TRACT INFECTION [None]
  - VAGINAL INFECTION [None]
  - VAGINAL ULCERATION [None]
  - VERTIGO [None]
  - VITREOUS DETACHMENT [None]
  - WEIGHT DECREASED [None]
